FAERS Safety Report 10802562 (Version 1)
Quarter: 2015Q1

REPORT INFORMATION
  Report Type: Spontaneous
  Country: BR (occurrence: BR)
  Receive Date: 20150217
  Receipt Date: 20150217
  Transmission Date: 20150721
  Serious: Yes (Other)
  Sender: FDA-Public Use
  Company Number: BR-SA-2015SA017713

PATIENT
  Age: 48 Year
  Sex: Female

DRUGS (1)
  1. CEREZYME [Suspect]
     Active Substance: IMIGLUCERASE
     Indication: GAUCHER^S DISEASE
     Dosage: 9 VIALS
     Route: 041
     Dates: start: 20040205

REACTIONS (7)
  - Dyspepsia [Not Recovered/Not Resolved]
  - Anxiety [Unknown]
  - Cardiac disorder [Unknown]
  - Gait disturbance [Unknown]
  - Pulmonary hypertension [Unknown]
  - Depression [Unknown]
  - Abdominal pain upper [Not Recovered/Not Resolved]

NARRATIVE: CASE EVENT DATE: 201502
